FAERS Safety Report 5428246-4 (Version None)
Quarter: 2007Q3

REPORT INFORMATION
  Report Type: 
  Country: None (occurrence: None)
  Receive Date: 20070731
  Receipt Date: 20070409
  Transmission Date: 20080115
  Serious: No
  Sender: FDA-Public Use
  Company Number: US200704002101

PATIENT
  Age: 64 Year
  Sex: Male

DRUGS (2)
  1. BYETTA [Suspect]
     Indication: TYPE 2 DIABETES MELLITUS
     Dosage: 5 UG, 2/D, SUBCUTANEOUS;  10 UG, 2/D, SUBCUTANEOUS
     Route: 058
     Dates: start: 20070201, end: 20070201
  2. EXENTIDE 10MCG PEN,  DISPOSABLE DEVICE (EXENTIDE PEN (10MCG)) PEN,  DI [Concomitant]

REACTIONS (2)
  - INFLUENZA [None]
  - NAUSEA [None]
